FAERS Safety Report 4419395-8 (Version None)
Quarter: 2004Q3

REPORT INFORMATION
  Report Type: 
  Country: None (occurrence: None)
  Receive Date: 20040809
  Receipt Date: 20040127
  Transmission Date: 20050211
  Serious: No
  Sender: FDA-Public Use
  Company Number: US-GLAXOSMITHKLINE-A0495252A

PATIENT
  Sex: Female

DRUGS (2)
  1. PAXIL [Suspect]
  2. WINE [Concomitant]

REACTIONS (2)
  - DYSPNOEA [None]
  - OVERDOSE [None]
